FAERS Safety Report 7624604-8 (Version None)
Quarter: 2011Q3

REPORT INFORMATION
  Report Type: 
  Country: None (occurrence: None)
  Receive Date: 20110720
  Receipt Date: 20110707
  Transmission Date: 20111222
  Serious: Yes (Life-Threatening, Other)
  Sender: FDA-Public Use
  Company Number: GB-WATSON-2011-10543

PATIENT
  Age: 86 Year
  Sex: Male
  Weight: 76.2 kg

DRUGS (2)
  1. BISOPROLOL [Concomitant]
     Indication: HYPERTENSION
     Dosage: 2.5 MG, UNKNOWN
     Route: 048
     Dates: start: 20090101
  2. AMLODIPINE [Suspect]
     Indication: HYPERTENSION
     Dosage: 5 MG, UNKNOWN
     Route: 048
     Dates: start: 20100301, end: 20110301

REACTIONS (3)
  - HEART RATE IRREGULAR [None]
  - EXTRASYSTOLES [None]
  - CARDIAC MURMUR [None]
